FAERS Safety Report 10221733 (Version 2)
Quarter: 2014Q3

REPORT INFORMATION
  Report Type: Spontaneous
  Country: US (occurrence: US)
  Receive Date: 20140606
  Receipt Date: 20140707
  Transmission Date: 20150326
  Serious: Yes (Other)
  Sender: FDA-Public Use
  Company Number: US-GLAXOSMITHKLINE-A1075276A

PATIENT
  Age: 69 Year
  Sex: Female
  Weight: 78.2 kg

DRUGS (20)
  1. BENLYSTA [Suspect]
     Active Substance: BELIMUMAB
     Indication: SYSTEMIC LUPUS ERYTHEMATOSUS
     Route: 042
  2. PLAQUENIL [Concomitant]
     Active Substance: HYDROXYCHLOROQUINE SULFATE
  3. HCTZ [Concomitant]
     Active Substance: HYDROCHLOROTHIAZIDE
  4. PREDNISONE. [Concomitant]
     Active Substance: PREDNISONE
  5. NEURONTIN [Concomitant]
     Active Substance: GABAPENTIN
  6. NAPROXEN. [Concomitant]
     Active Substance: NAPROXEN
  7. ACEON [Concomitant]
     Active Substance: PERINDOPRIL ERBUMINE
  8. VITAMIN B [Concomitant]
     Active Substance: VITAMIN B
  9. CALCIUM [Concomitant]
     Active Substance: CALCIUM
  10. FLOVENT [Concomitant]
     Active Substance: FLUTICASONE PROPIONATE
  11. ASTELIN [Concomitant]
     Active Substance: AZELASTINE HYDROCHLORIDE
  12. VITAMIN D [Concomitant]
     Active Substance: CHOLECALCIFEROL
  13. RESTASIS [Concomitant]
     Active Substance: CYCLOSPORINE
  14. NASAREL [Concomitant]
     Active Substance: FLUNISOLIDE
  15. SIMVASTATIN. [Concomitant]
     Active Substance: SIMVASTATIN
  16. NITROFURANTOIN (MACROCRYSTALS) [Concomitant]
     Active Substance: NITROFURANTOIN
  17. PROTONIX [Concomitant]
     Active Substance: PANTOPRAZOLE SODIUM
  18. MULTIVITAMIN [Concomitant]
     Active Substance: VITAMINS
  19. ASPIRIN. [Concomitant]
     Active Substance: ASPIRIN
  20. VITAMIN C [Concomitant]
     Active Substance: ASCORBIC ACID

REACTIONS (11)
  - Neoplasm malignant [Recovering/Resolving]
  - Confusional state [Recovering/Resolving]
  - Ophthalmoplegia [Recovering/Resolving]
  - Headache [Recovering/Resolving]
  - IIIrd nerve paralysis [Recovering/Resolving]
  - Eyelid ptosis [Recovering/Resolving]
  - Blindness transient [Recovered/Resolved]
  - Pupils unequal [Recovering/Resolving]
  - Ill-defined disorder [Recovering/Resolving]
  - Visual impairment [Recovering/Resolving]
  - Eye disorder [Recovering/Resolving]

NARRATIVE: CASE EVENT DATE: 20140405
